FAERS Safety Report 11116293 (Version 1)
Quarter: 2015Q2

REPORT INFORMATION
  Report Type: Report from Study
  Country: SE (occurrence: SE)
  Receive Date: 20150515
  Receipt Date: 20150515
  Transmission Date: 20150821
  Serious: Yes (Hospitalization)
  Sender: FDA-Public Use
  Company Number: PHHY2015SE056811

PATIENT
  Age: 62 Year
  Sex: Male
  Weight: 87.8 kg

DRUGS (2)
  1. SOMATROPIN [Suspect]
     Active Substance: SOMATROPIN
     Indication: GROWTH HORMONE DEFICIENCY
     Dosage: 0.1 MG, QD
     Route: 058
     Dates: start: 20140501, end: 20150504
  2. SOMATROPIN [Suspect]
     Active Substance: SOMATROPIN
     Dosage: 0.1 MG, QD
     Route: 058

REACTIONS (5)
  - Infection [Unknown]
  - Urinary incontinence [Not Recovered/Not Resolved]
  - Fatigue [Not Recovered/Not Resolved]
  - Asthenia [Not Recovered/Not Resolved]
  - Fall [Not Recovered/Not Resolved]

NARRATIVE: CASE EVENT DATE: 20150504
